FAERS Safety Report 9201206 (Version 2)
Quarter: 2013Q2

REPORT INFORMATION
  Report Type: Spontaneous
  Country: TR (occurrence: TR)
  Receive Date: 20130401
  Receipt Date: 20130424
  Transmission Date: 20140414
  Serious: Yes (Other)
  Sender: FDA-Public Use
  Company Number: TR-BAYER-2013-037308

PATIENT
  Age: 23 Year
  Sex: Female
  Weight: 45 kg

DRUGS (1)
  1. AVELOX [Suspect]
     Indication: NASOPHARYNGITIS
     Dosage: UNK

REACTIONS (4)
  - Uveitis [Not Recovered/Not Resolved]
  - Iris transillumination defect [Not Recovered/Not Resolved]
  - Eye pain [Not Recovered/Not Resolved]
  - Eye infection [None]
